FAERS Safety Report 10548956 (Version 1)
Quarter: 2014Q4

REPORT INFORMATION
  Report Type: Report from Study
  Country: US (occurrence: US)
  Receive Date: 20141028
  Receipt Date: 20141028
  Transmission Date: 20150529
  Serious: Yes (Other)
  Sender: FDA-Public Use
  Company Number: US-MYLANLABS-2014M1008646

PATIENT

DRUGS (18)
  1. OXYCODONE [Suspect]
     Active Substance: OXYCODONE
     Indication: BACK PAIN
     Route: 048
  2. ZOLPIDEM [Concomitant]
     Active Substance: ZOLPIDEM\ZOLPIDEM TARTRATE
     Indication: BACK PAIN
     Route: 048
  3. MORPHINE [Suspect]
     Active Substance: MORPHINE
     Indication: BACK PAIN
     Route: 048
  4. OXYCODONE W/PARACETAMOL [Suspect]
     Active Substance: ACETAMINOPHEN\OXYCODONE HYDROCHLORIDE
     Indication: BACK PAIN
     Route: 050
  5. QUETIAPINE [Concomitant]
     Active Substance: QUETIAPINE
     Indication: BACK PAIN
     Route: 048
  6. CLONIDINE. [Concomitant]
     Active Substance: CLONIDINE
     Indication: BACK PAIN
     Dosage: 82.5 MICROG/DAY
     Route: 037
  7. SUFENTANIL [Suspect]
     Active Substance: SUFENTANIL
     Indication: BACK PAIN
     Dosage: 88 ?G, QD
     Route: 037
  8. CLONAZEPAM. [Concomitant]
     Active Substance: CLONAZEPAM
     Indication: BACK PAIN
     Route: 048
  9. CARISOPRODOL. [Concomitant]
     Active Substance: CARISOPRODOL
     Indication: BACK PAIN
     Route: 048
  10. ALPRAZOLAM. [Concomitant]
     Active Substance: ALPRAZOLAM
     Indication: BACK PAIN
     Route: 048
  11. BACLOFEN. [Concomitant]
     Active Substance: BACLOFEN
     Indication: BACK PAIN
     Dosage: 275 MICROG/DAY
     Route: 037
  12. HYDROMORPHONE [Suspect]
     Active Substance: HYDROMORPHONE
     Indication: BACK PAIN
     Route: 048
  13. DIAZEPAM. [Concomitant]
     Active Substance: DIAZEPAM
     Indication: BACK PAIN
     Route: 048
  14. TRAZODONE [Concomitant]
     Active Substance: TRAZODONE HYDROCHLORIDE
     Indication: BACK PAIN
     Route: 048
  15. FENTANYL. [Suspect]
     Active Substance: FENTANYL
     Indication: BACK PAIN
     Route: 065
  16. FENTANYL. [Suspect]
     Active Substance: FENTANYL
     Route: 062
  17. HYDROMORPHONE [Suspect]
     Active Substance: HYDROMORPHONE
     Dosage: 0.27 MG, QD
     Route: 037
  18. FENTANYL. [Suspect]
     Active Substance: FENTANYL
     Indication: BACK PAIN
     Dosage: 5.5 MG, QD
     Route: 037

REACTIONS (9)
  - Hypogonadism [Unknown]
  - Hyperaesthesia [Recovering/Resolving]
  - Rhinitis [Unknown]
  - Sedation [Unknown]
  - Dry mouth [Unknown]
  - Vomiting [Unknown]
  - Device related infection [None]
  - Muscle spasms [Unknown]
  - Nausea [Unknown]
